FAERS Safety Report 5345651-5 (Version None)
Quarter: 2007Q2

REPORT INFORMATION
  Report Type: 
  Country: None (occurrence: None)
  Receive Date: 20070605
  Receipt Date: 20070207
  Transmission Date: 20071010
  Serious: No
  Sender: FDA-Public Use
  Company Number: US-ASTRAZENECA-2007UW02604

PATIENT
  Age: 77 Year
  Sex: Male

DRUGS (4)
  1. PRILOSEC [Suspect]
     Route: 048
     Dates: start: 19980101
  2. LUPRON [Concomitant]
  3. ATENOLOL [Concomitant]
  4. HYDROCHLOROTHIAZIDE [Concomitant]

REACTIONS (2)
  - ALOPECIA [None]
  - OSTEOPOROSIS [None]
